FAERS Safety Report 6709758-X (Version None)
Quarter: 2010Q2

REPORT INFORMATION
  Report Type: 
  Country: None (occurrence: None)
  Receive Date: 20100504
  Receipt Date: 20100430
  Transmission Date: 20101027
  Serious: Yes (Hospitalization)
  Sender: FDA-Public Use
  Company Number: IT-ROCHE-700566

PATIENT
  Sex: Female

DRUGS (6)
  1. ROCEPHIN [Suspect]
     Indication: BRONCHITIS
     Route: 030
     Dates: start: 20100409, end: 20100409
  2. GLIBOMET [Concomitant]
     Route: 048
     Dates: start: 20000101
  3. COVERSYL [Concomitant]
     Route: 048
     Dates: start: 20000101
  4. LASITONE [Concomitant]
     Route: 048
     Dates: start: 20000101
  5. ASPIRIN [Concomitant]
     Route: 048
     Dates: start: 20000101
  6. NITROCOR [Concomitant]
     Dosage: ROUTE:PATCH
     Route: 050
     Dates: start: 20000101

REACTIONS (4)
  - ATRIAL FIBRILLATION [None]
  - HYPOTENSION [None]
  - LARYNGEAL OEDEMA [None]
  - URTICARIA [None]
